FAERS Safety Report 14079908 (Version 1)
Quarter: 2017Q4

REPORT INFORMATION
  Report Type: Spontaneous
  Country: MX (occurrence: MX)
  Receive Date: 20171012
  Receipt Date: 20171012
  Transmission Date: 20180321
  Serious: Yes (Hospitalization, Other)
  Sender: FDA-Public Use
  Company Number: US-ASTRAZENECA-2017SF04393

PATIENT
  Sex: Male

DRUGS (1)
  1. SYNAGIS [Suspect]
     Active Substance: PALIVIZUMAB
     Indication: PREMATURE BABY
     Dosage: 15 MG/KG
     Route: 065
     Dates: start: 20170815, end: 2017

REACTIONS (6)
  - Neurological infection [Unknown]
  - Sepsis neonatal [Unknown]
  - Apnoea [Unknown]
  - Pancytopenia [Unknown]
  - Viral infection [Unknown]
  - Purpura [Unknown]

NARRATIVE: CASE EVENT DATE: 2017
